FAERS Safety Report 5594807-5 (Version None)
Quarter: 2008Q1

REPORT INFORMATION
  Report Type: 
  Country: None (occurrence: None)
  Receive Date: 20080117
  Receipt Date: 20080107
  Transmission Date: 20080703
  Serious: Yes (Death)
  Sender: FDA-Public Use
  Company Number: B0502616A

PATIENT

DRUGS (2)
  1. TOPOTECAN [Suspect]
     Indication: NEUROBLASTOMA
     Route: 065
  2. RADIATION [Suspect]
     Indication: NEUROBLASTOMA
     Route: 065

REACTIONS (1)
  - DRUG TOXICITY [None]
